FAERS Safety Report 4301356-0 (Version None)
Quarter: 2004Q1

REPORT INFORMATION
  Report Type: 
  Country: None (occurrence: None)
  Receive Date: 20040223
  Receipt Date: 20030522
  Transmission Date: 20041129
  Serious: No
  Sender: FDA-Public Use
  Company Number: US-GLAXOSMITHKLINE-A0409338A

PATIENT
  Age: 77 Year
  Sex: Male
  Weight: 90 kg

DRUGS (2)
  1. NAVELBINE [Suspect]
     Indication: CHEMOTHERAPY
     Route: 042
     Dates: start: 20030519, end: 20030521
  2. RADIATION THERAPY [Concomitant]

REACTIONS (1)
  - TINNITUS [None]
